FAERS Safety Report 15887803 (Version 1)
Quarter: 2019Q1

REPORT INFORMATION
  Report Type: Report from Study
  Country: DE (occurrence: DE)
  Receive Date: 20190130
  Receipt Date: 20190130
  Transmission Date: 20190417
  Serious: Yes (Life-Threatening, Hospitalization)
  Sender: FDA-Public Use
  Company Number: DE-ACCORD-103494

PATIENT
  Age: 49 Year
  Sex: Male
  Weight: 86 kg

DRUGS (7)
  1. GEMCITABINE/GEMCITABINE HYDROCHLORIDE [Suspect]
     Active Substance: GEMCITABINE\GEMCITABINE HYDROCHLORIDE
     Indication: NON-SMALL CELL LUNG CANCER
     Dosage: 1000MG/M2 DAY 1 AND DAY 8
     Route: 042
     Dates: start: 20131001, end: 20131127
  2. METAMIZOLE SODIUM [Concomitant]
     Active Substance: METAMIZOLE SODIUM
     Indication: PAIN
     Dosage: DAILY DOSE: 2000 MG MILLGRAM(S) EVERY DAYS
     Route: 048
  3. NOVALGIN (METAMIZOLE SODIUM) [Concomitant]
     Active Substance: METAMIZOLE SODIUM
     Indication: PAIN
     Dosage: MAXIMUM OF 8 TABLETS PER DAY
     Route: 048
  4. CARBOPLATIN. [Suspect]
     Active Substance: CARBOPLATIN
     Indication: NON-SMALL CELL LUNG CANCER
     Dosage: AUC4,ALSO TAKEN 580 MG
     Route: 042
     Dates: start: 20131001, end: 20131120
  5. SPIRIVA [Concomitant]
     Active Substance: TIOTROPIUM BROMIDE MONOHYDRATE
     Indication: CHRONIC OBSTRUCTIVE PULMONARY DISEASE
     Dosage: 1-0-0
     Route: 048
     Dates: start: 20130918
  6. PAMIDRONIC ACID [Concomitant]
     Active Substance: PAMIDRONIC ACID
     Indication: METASTASES TO BONE
     Dosage: DAILY DOSE: 60 MG MILLGRAM(S) EVERY 3 WEEKS
     Route: 042
     Dates: start: 20131106, end: 20131127
  7. AVASTIN [Suspect]
     Active Substance: BEVACIZUMAB
     Indication: NON-SMALL CELL LUNG CANCER
     Dosage: 580 MG
     Route: 042
     Dates: start: 20131030, end: 20131120

REACTIONS (3)
  - Chronic fatigue syndrome [Unknown]
  - Pericardial effusion [Recovering/Resolving]
  - Pulmonary embolism [Recovering/Resolving]

NARRATIVE: CASE EVENT DATE: 20131106
